FAERS Safety Report 9885384 (Version 2)
Quarter: 2014Q3

REPORT INFORMATION
  Report Type: Spontaneous
  Country: US (occurrence: US)
  Receive Date: 20140210
  Receipt Date: 20140714
  Transmission Date: 20150326
  Serious: Yes (Hospitalization, Other)
  Sender: FDA-Public Use
  Company Number: US-009507513-1402USA003551

PATIENT
  Sex: Female

DRUGS (1)
  1. NUVARING [Suspect]
     Active Substance: ETHINYL ESTRADIOL\ETONOGESTREL
     Indication: CONTRACEPTION
     Dosage: UNK
     Route: 067
     Dates: end: 201301

REACTIONS (7)
  - Gastrooesophageal reflux disease [Unknown]
  - Anxiety [Unknown]
  - Pulmonary infarction [Unknown]
  - Pulmonary embolism [Unknown]
  - Headache [Unknown]
  - Depression [Unknown]
  - Benign breast lump removal [Unknown]

NARRATIVE: CASE EVENT DATE: 2005
